FAERS Safety Report 24457304 (Version 1)
Quarter: 2024Q4

REPORT INFORMATION
  Report Type: Spontaneous
  Country: AU (occurrence: AU)
  Receive Date: 20241018
  Receipt Date: 20241018
  Transmission Date: 20250114
  Serious: Yes (Other)
  Sender: NOVO NORDISK
  Company Number: None

PATIENT
  Age: 50 Year
  Sex: Male

DRUGS (5)
  1. NOVOSEVEN [Suspect]
     Active Substance: COAGULATION FACTOR VIIA RECOMBINANT HUMAN
     Indication: Product used for unknown indication
     Dosage: UNK (DOSE FORM: UNK; ROUTE OF ADMINISTRATION: INFORMATION NOT PROVIDED BY SPONSOR)
  2. FEIBA NF [Suspect]
     Active Substance: ANTI-INHIBITOR COAGULANT COMPLEX
     Indication: Product used for unknown indication
     Dosage: UNK (DOSE FORM: UNK; ROUTE OF ADMINISTRATION: INFORMATION NOT PROVIDED BY SPONSOR)
  3. EMICIZUMAB [Suspect]
     Active Substance: EMICIZUMAB
     Indication: Product used for unknown indication
     Dosage: UNK (ROUTE OF ADMINISTRATION: INFORMATION NOT PROVIDED BY SPONSOR)
     Dates: start: 2021
  4. HEROIN [Suspect]
     Active Substance: DIAMORPHINE
     Indication: Product used for unknown indication
     Dosage: DOSE FORM: UNK; ROUTE OF ADMINISTRATION: INFORMATION NOT PROVIDED BY SPONSOR
  5. ANTIHEMOPHILIC FACTOR, HUMAN RECOMBINANT RESIDUES 743-1636 DELETED [Suspect]
     Active Substance: ANTIHEMOPHILIC FACTOR, HUMAN RECOMBINANT RESIDUES 743-1636 DELETED
     Indication: Factor VIII deficiency
     Dosage: DOSE: 3000 INTERNATIONAL UNIT; ; ROUTE OF ADMINISTRATION: INFORMATION NOT PROVIDED BY SPONSOR

REACTIONS (13)
  - Anti factor VIII antibody positive [Unknown]
  - Salivary gland neoplasm [Unknown]
  - Haemarthrosis [Unknown]
  - Muscle haemorrhage [Unknown]
  - Gastrointestinal haemorrhage [Unknown]
  - Haematoma [Unknown]
  - Drug abuser [Unknown]
  - Drug specific antibody present [Unknown]
  - Fall [Unknown]
  - Musculoskeletal pain [Unknown]
  - Skin infection [Unknown]
  - Weight decreased [Unknown]
  - Treatment noncompliance [Unknown]

NARRATIVE: CASE EVENT DATE: 20160101
